FAERS Safety Report 10905209 (Version 2)
Quarter: 2015Q2

REPORT INFORMATION
  Report Type: Spontaneous
  Country: JP (occurrence: JP)
  Receive Date: 20150311
  Receipt Date: 20150528
  Transmission Date: 20150821
  Serious: Yes (Life-Threatening, Hospitalization, Disabling, Other)
  Sender: FDA-Public Use
  Company Number: PHHY2014JP142293

PATIENT
  Age: 50 Year
  Sex: Female
  Weight: 44 kg

DRUGS (3)
  1. VOLTAREN [Suspect]
     Active Substance: DICLOFENAC SODIUM
     Indication: BACK PAIN
     Dosage: 4 DF, BID
     Route: 065
     Dates: start: 201309
  2. VOLTAREN [Suspect]
     Active Substance: DICLOFENAC SODIUM
     Indication: PRODUCT USED FOR UNKNOWN INDICATION
     Dosage: UNK
     Route: 065
  3. VOLTAREN [Suspect]
     Active Substance: DICLOFENAC SODIUM
     Dosage: 75 MG, BID
     Route: 048
     Dates: start: 20140908

REACTIONS (26)
  - Large intestinal ulcer [Recovered/Resolved]
  - Platelet count increased [Unknown]
  - Blood albumin decreased [Unknown]
  - Red blood cell count decreased [Unknown]
  - Blood urea increased [Unknown]
  - Abdominal distension [Unknown]
  - Overdose [Unknown]
  - Blood sodium decreased [Unknown]
  - Blood bicarbonate decreased [Unknown]
  - Blood alkaline phosphatase increased [Unknown]
  - Intestinal stenosis [Recovering/Resolving]
  - Haemoglobin decreased [Unknown]
  - Haematocrit decreased [Unknown]
  - Constipation [Unknown]
  - Blood iron decreased [Unknown]
  - PO2 increased [Unknown]
  - Large intestinal ulcer [Recovering/Resolving]
  - C-reactive protein increased [Unknown]
  - White blood cell count increased [Unknown]
  - Gastric ulcer [Recovered/Resolved]
  - Abdominal pain [Unknown]
  - Blood creatinine increased [Unknown]
  - Oliguria [Unknown]
  - Blood glucose decreased [Unknown]
  - Blood potassium decreased [Unknown]
  - Diarrhoea [Unknown]

NARRATIVE: CASE EVENT DATE: 201407
